FAERS Safety Report 8813245 (Version 1)
Quarter: 2012Q4

REPORT INFORMATION
  Report Type: 
  Country: US (occurrence: US)
  Receive Date: 20120927
  Receipt Date: 20120927
  Transmission Date: 20130627
  Serious: No
  Sender: FDA-Public Use
  Company Number: US-AMGEN-USASP2012039935

PATIENT
  Sex: Female

DRUGS (1)
  1. PROLIA [Suspect]
     Indication: BONE LOSS
     Dosage: 60 mg, UNK

REACTIONS (2)
  - Nausea [Unknown]
  - Vomiting [Unknown]
